FAERS Safety Report 24556806 (Version 1)
Quarter: 2024Q4

REPORT INFORMATION
  Report Type: Spontaneous
  Country: US (occurrence: US)
  Receive Date: 20241028
  Receipt Date: 20241028
  Transmission Date: 20250115
  Serious: No
  Sender: PFIZER
  Company Number: US-PFIZER INC-PV202400138621

PATIENT
  Age: 57 Year
  Sex: Female

DRUGS (5)
  1. SOLU-MEDROL [Suspect]
     Active Substance: METHYLPREDNISOLONE SODIUM SUCCINATE
  2. AVONEX [Suspect]
     Active Substance: INTERFERON BETA-1A
  3. REBIF [Suspect]
     Active Substance: INTERFERON BETA-1A
  4. TYSABRI [Suspect]
     Active Substance: NATALIZUMAB
  5. GILENYA [Suspect]
     Active Substance: FINGOLIMOD HYDROCHLORIDE

REACTIONS (1)
  - JC polyomavirus test positive [Unknown]
